FAERS Safety Report 8859084 (Version 1)
Quarter: 2012Q4

REPORT INFORMATION
  Report Type: 
  Country: DE (occurrence: DE)
  Receive Date: 20121024
  Receipt Date: 20121024
  Transmission Date: 20130627
  Serious: Yes (Other)
  Sender: FDA-Public Use
  Company Number: DE-CUBIST-2012S1000844

PATIENT

DRUGS (1)
  1. CUBICIN [Suspect]
     Indication: DEVICE RELATED INFECTION
     Dates: start: 20120621, end: 20120710

REACTIONS (2)
  - Wound [Unknown]
  - Antimicrobial susceptibility test resistant [Recovered/Resolved]
